FAERS Safety Report 8240921-5 (Version None)
Quarter: 2012Q1

REPORT INFORMATION
  Report Type: 
  Country: None (occurrence: None)
  Receive Date: 20120328
  Receipt Date: 20120321
  Transmission Date: 20120608
  Serious: Yes (Other)
  Sender: FDA-Public Use
  Company Number: US-AMGEN-USASP2012003961

PATIENT
  Age: 78 Year
  Sex: Female

DRUGS (6)
  1. ATENOLOL [Concomitant]
  2. FLAXSEED OIL [Concomitant]
  3. XALATAN [Concomitant]
  4. COUMADIN [Concomitant]
  5. PROLIA [Suspect]
     Indication: OSTEOPOROSIS POSTMENOPAUSAL
     Dosage: 60 MG, Q6MO
     Route: 058
     Dates: start: 20110711, end: 20110711
  6. PROLIA [Suspect]
     Dosage: 60 MG, ONE TIME DOSE
     Route: 058
     Dates: start: 20120119, end: 20120119

REACTIONS (5)
  - POOR QUALITY SLEEP [None]
  - ORAL INFECTION [None]
  - MYALGIA [None]
  - ARTHRALGIA [None]
  - PAIN IN EXTREMITY [None]
